FAERS Safety Report 13770724 (Version 3)
Quarter: 2017Q3

REPORT INFORMATION
  Report Type: Spontaneous
  Country: US (occurrence: US)
  Receive Date: 20170720
  Receipt Date: 20170828
  Transmission Date: 20171127
  Serious: No
  Sender: FDA-Public Use
  Company Number: US-009507513-1707USA006039

PATIENT
  Sex: Female

DRUGS (1)
  1. DULERA [Suspect]
     Active Substance: FORMOTEROL FUMARATE DIHYDRATE\MOMETASONE FUROATE
     Dosage: UNK
     Route: 055
     Dates: start: 2014

REACTIONS (4)
  - Product container issue [Unknown]
  - Drug dose omission [Unknown]
  - Respiratory disorder [Unknown]
  - Wheezing [Unknown]

NARRATIVE: CASE EVENT DATE: 2017
